FAERS Safety Report 23687487 (Version 1)
Quarter: 2024Q1

REPORT INFORMATION
  Report Type: Spontaneous
  Country: US (occurrence: US)
  Receive Date: 20240329
  Receipt Date: 20240329
  Transmission Date: 20240410
  Serious: No
  Sender: FDA-Public Use
  Company Number: US-LANNETT COMPANY, INC.-US-2024LAN000001

PATIENT

DRUGS (2)
  1. LEVOTHYROXINE SODIUM [Suspect]
     Active Substance: LEVOTHYROXINE SODIUM
     Indication: Thyroid disorder
     Dosage: UNK
     Route: 065
  2. LEVOTHYROXINE SODIUM [Suspect]
     Active Substance: LEVOTHYROXINE SODIUM
     Dosage: UNKHALF OF A LEVOTHYROXINE 100 MG TABLET
     Route: 065

REACTIONS (1)
  - Blood thyroid stimulating hormone decreased [Recovering/Resolving]

NARRATIVE: CASE EVENT DATE: 20240202
